FAERS Safety Report 8460028-1 (Version None)
Quarter: 2012Q2

REPORT INFORMATION
  Report Type: 
  Country: None (occurrence: None)
  Receive Date: 20120622
  Receipt Date: 20120619
  Transmission Date: 20120825
  Serious: Yes (Other)
  Sender: FDA-Public Use
  Company Number: PHHY2012US052599

PATIENT
  Age: 16 Year
  Sex: Male

DRUGS (2)
  1. SOMATROPIN [Suspect]
     Indication: GROWTH HORMONE DEFICIENCY
  2. SOMATROPIN [Suspect]
     Indication: DWARFISM

REACTIONS (3)
  - OSTEOCHONDROSIS [None]
  - JOINT SWELLING [None]
  - ARTHRALGIA [None]
